FAERS Safety Report 13338782 (Version 1)
Quarter: 2017Q1

REPORT INFORMATION
  Report Type: Spontaneous
  Country: NO (occurrence: NO)
  Receive Date: 20170315
  Receipt Date: 20170315
  Transmission Date: 20170428
  Serious: Yes (Other)
  Sender: FDA-Public Use
  Company Number: NO-009507513-1703NOR006692

PATIENT
  Age: 6 Decade
  Sex: Female

DRUGS (5)
  1. POSACONAZOLE [Suspect]
     Active Substance: POSACONAZOLE
     Indication: MUCORMYCOSIS
     Dosage: 300 MG, QD
     Route: 048
  2. AMPHOTERICIN B. [Concomitant]
     Active Substance: AMPHOTERICIN B
     Indication: MUCORMYCOSIS
     Dosage: 1 MG/KG/DAY; LATER, INCREASED TO 3 MG/KG/DAY
     Route: 065
  3. POSACONAZOLE [Suspect]
     Active Substance: POSACONAZOLE
     Dosage: 400 MG, BID
     Route: 048
  4. AMPHOTERICIN B. [Concomitant]
     Active Substance: AMPHOTERICIN B
     Dosage: 3 MG/KG/DAY
     Route: 065
  5. POSACONAZOLE [Suspect]
     Active Substance: POSACONAZOLE
     Indication: MUCORMYCOSIS
     Dosage: LATER, CHANGED TO ORAL MIXTURE AT THE SAME DOSE
     Route: 042

REACTIONS (3)
  - Incorrect dose administered [Recovering/Resolving]
  - Sepsis [Recovering/Resolving]
  - Drug dose omission [Recovering/Resolving]
